FAERS Safety Report 20950590 (Version 1)
Quarter: 2022Q2

REPORT INFORMATION
  Report Type: Spontaneous
  Country: US (occurrence: None)
  Receive Date: 20220611
  Receipt Date: 20220611
  Transmission Date: 20220721
  Serious: Yes (Hospitalization)
  Sender: FDA-Public Use
  Company Number: None

PATIENT
  Age: 22 Year
  Sex: Male
  Weight: 132.9 kg

DRUGS (6)
  1. DAUNORUBICIN [Suspect]
     Active Substance: DAUNORUBICIN
     Dates: end: 20220609
  2. CYTARABINE [Suspect]
     Active Substance: CYTARABINE
     Dates: end: 20220521
  3. DEXAMETHASONE [Suspect]
     Active Substance: DEXAMETHASONE
     Dates: end: 20220608
  4. METHOTREXATE [Suspect]
     Active Substance: METHOTREXATE
     Dates: end: 20220527
  5. ONCASPAR [Suspect]
     Active Substance: PEGASPARGASE
     Dates: end: 20220523
  6. VINCRISTINE SULFATE [Suspect]
     Active Substance: VINCRISTINE SULFATE
     Dates: end: 20220609

REACTIONS (10)
  - Back pain [None]
  - Asthenia [None]
  - Musculoskeletal stiffness [None]
  - Musculoskeletal discomfort [None]
  - Arthropathy [None]
  - Blood lactic acid increased [None]
  - Blood bilirubin increased [None]
  - Blood alkaline phosphatase increased [None]
  - Blood glucose increased [None]
  - Blood urea increased [None]

NARRATIVE: CASE EVENT DATE: 20220610
